FAERS Safety Report 8225904-3 (Version None)
Quarter: 2012Q1

REPORT INFORMATION
  Report Type: 
  Country: None (occurrence: None)
  Receive Date: 20120321
  Receipt Date: 20120313
  Transmission Date: 20120608
  Serious: Yes (Life-Threatening, Hospitalization)
  Sender: FDA-Public Use
  Company Number: FR-ROCHE-1050547

PATIENT
  Sex: Male
  Weight: 85 kg

DRUGS (1)
  1. TENECTEPLASE [Suspect]
     Indication: PULMONARY EMBOLISM

REACTIONS (3)
  - ISCHAEMIC STROKE [None]
  - PULMONARY EMBOLISM [None]
  - THROMBECTOMY [None]
